FAERS Safety Report 6586502-0 (Version None)
Quarter: 2010Q1

REPORT INFORMATION
  Report Type: 
  Country: None (occurrence: None)
  Receive Date: 20100216
  Receipt Date: 20100216
  Transmission Date: 20100710
  Serious: Yes (Death, Life-Threatening, Hospitalization, Other)
  Sender: FDA-Public Use
  Company Number: None

PATIENT
  Sex: Female
  Weight: 33.5662 kg

DRUGS (5)
  1. OXYCODONE 10/325 ENBO [Suspect]
     Indication: ARTHRITIS
     Dosage: 1 4-6 HOURS PO
     Route: 048
     Dates: start: 20001001, end: 20001002
  2. OXYCODONE 10/325 ENBO [Suspect]
     Indication: BACK PAIN
     Dosage: 1 4-6 HOURS PO
     Route: 048
     Dates: start: 20001001, end: 20001002
  3. OXYCODONE 10/325 ENBO [Suspect]
     Indication: BURSITIS
     Dosage: 1 4-6 HOURS PO
     Route: 048
     Dates: start: 20001001, end: 20001002
  4. OXYCODONE 10/325 ENBO [Suspect]
     Indication: INTERVERTEBRAL DISC PROTRUSION
     Dosage: 1 4-6 HOURS PO
     Route: 048
     Dates: start: 20001001, end: 20001002
  5. OXYCODONE 10/325 ENBO [Suspect]
     Indication: PAIN IN EXTREMITY
     Dosage: 1 4-6 HOURS PO
     Route: 048
     Dates: start: 20001001, end: 20001002

REACTIONS (3)
  - BLOOD PRESSURE INCREASED [None]
  - DIZZINESS [None]
  - NAUSEA [None]
